FAERS Safety Report 21692373 (Version 2)
Quarter: 2023Q2

REPORT INFORMATION
  Report Type: Spontaneous
  Country: BE (occurrence: BE)
  Receive Date: 20221207
  Receipt Date: 20230424
  Transmission Date: 20230721
  Serious: Yes (Hospitalization, Other)
  Sender: FDA-Public Use
  Company Number: None

PATIENT
  Age: 67 Year
  Sex: Male

DRUGS (2)
  1. DASATINIB [Suspect]
     Active Substance: DASATINIB
     Indication: Chronic myeloid leukaemia
     Dates: start: 2019
  2. DASATINIB [Suspect]
     Active Substance: DASATINIB
     Dosage: DOSE WAS TAPPERED OFF.
     Dates: end: 202107

REACTIONS (1)
  - Chylothorax [Not Recovered/Not Resolved]
